FAERS Safety Report 9837478 (Version 1)
Quarter: 2014Q1

REPORT INFORMATION
  Report Type: Spontaneous
  Country: BR (occurrence: BR)
  Receive Date: 20140123
  Receipt Date: 20140123
  Transmission Date: 20141002
  Serious: Yes (Other)
  Sender: FDA-Public Use
  Company Number: BR-JNJFOC-20140111207

PATIENT
  Age: 31 Year
  Sex: Male

DRUGS (4)
  1. REMICADE [Suspect]
     Indication: CROHN^S DISEASE
     Route: 042
     Dates: start: 2013
  2. REMICADE [Suspect]
     Indication: CROHN^S DISEASE
     Route: 042
     Dates: start: 2004, end: 2007
  3. OMEPRAZOLE [Concomitant]
     Indication: GASTRIC DISORDER
     Route: 065
     Dates: start: 201308
  4. AZATHIOPRINE [Concomitant]
     Indication: IMMUNOSUPPRESSION
     Route: 065
     Dates: end: 201308

REACTIONS (2)
  - Herpes zoster [Recovered/Resolved]
  - Leukopenia [Unknown]
